FAERS Safety Report 13830007 (Version 1)
Quarter: 2017Q3

REPORT INFORMATION
  Report Type: Spontaneous
  Country: US (occurrence: US)
  Receive Date: 20170803
  Receipt Date: 20170803
  Transmission Date: 20171127
  Serious: Yes (Hospitalization)
  Sender: FDA-Public Use
  Company Number: US-TEVA-794065USA

PATIENT
  Age: 59 Year
  Sex: Female
  Weight: 81.65 kg

DRUGS (16)
  1. CALCIUM CHLORIDE. [Concomitant]
     Active Substance: CALCIUM CHLORIDE
     Indication: BRADYCARDIA
     Dosage: 2,000 MG
     Route: 040
  2. GLUCAGON. [Concomitant]
     Active Substance: GLUCAGON
     Indication: BRADYCARDIA
     Dosage: 3-MG/HOUR
     Route: 041
  3. GLUCOSE [Suspect]
     Active Substance: DEXTROSE
     Dosage: 10% AT A RATE OF 0.6 G/KG/HOUR
     Route: 041
  4. AMLODIPINE [Suspect]
     Active Substance: AMLODIPINE BESYLATE
     Indication: INTENTIONAL OVERDOSE
     Dosage: 200 MG
     Route: 048
  5. INSULIN [Concomitant]
     Active Substance: INSULIN NOS
     Dosage: 0.1 UNITS/KG/HOUR; LATER INCREASED
     Route: 065
  6. INSULIN [Concomitant]
     Active Substance: INSULIN NOS
     Dosage: 1.1 UNITS/KG/HOUR
     Route: 065
  7. ISOSORBIDE MONONITRATE. [Suspect]
     Active Substance: ISOSORBIDE MONONITRATE
     Indication: INTENTIONAL OVERDOSE
     Dosage: 1200 MG
     Route: 048
  8. LACTATED RINGERS [Concomitant]
     Active Substance: CALCIUM CHLORIDE\POTASSIUM CHLORIDE\SODIUM CHLORIDE\SODIUM LACTATE
     Indication: HYPOTENSION
     Dosage: 1LITRE
     Route: 065
  9. NOREPINEPHRINE. [Concomitant]
     Active Substance: NOREPINEPHRINE
     Indication: HYPOTENSION
     Dosage: 40 MCG/MIN
     Route: 050
  10. METOPROLOL. [Suspect]
     Active Substance: METOPROLOL
     Indication: INTENTIONAL OVERDOSE
     Dosage: 2000 MG
     Route: 048
  11. NOREPINEPHRINE. [Concomitant]
     Active Substance: NOREPINEPHRINE
     Indication: HYPOTENSION
     Dosage: 4 MCG/MIN; LATER INCREASED
     Route: 050
  12. GLUCOSE [Suspect]
     Active Substance: DEXTROSE
     Dosage: 0.3 G/KG; TWICE
     Route: 040
  13. GLUCOSE [Suspect]
     Active Substance: DEXTROSE
     Dosage: 5% AT A RATE OF 0.08 G/KG/HOUR; LATER INCREASED
     Route: 041
  14. GLUCAGON. [Concomitant]
     Active Substance: GLUCAGON
     Indication: BRADYCARDIA
     Dosage: 10 MG
     Route: 040
  15. SODIUM CHLORIDE. [Concomitant]
     Active Substance: SODIUM CHLORIDE
     Indication: HYPOTENSION
     Dosage: 3%; 1LITRE
     Route: 065
  16. CALCIUM GLUCONATE. [Concomitant]
     Active Substance: CALCIUM GLUCONATE
     Indication: HYPOTENSION
     Route: 042

REACTIONS (4)
  - Hyponatraemia [Recovering/Resolving]
  - Intentional overdose [Recovering/Resolving]
  - Bradycardia [Recovering/Resolving]
  - Hypotension [Recovering/Resolving]
